FAERS Safety Report 16151476 (Version 1)
Quarter: 2019Q2

REPORT INFORMATION
  Report Type: Spontaneous
  Country: US (occurrence: US)
  Receive Date: 20190403
  Receipt Date: 20190403
  Transmission Date: 20190711
  Serious: Yes (Other)
  Sender: FDA-Public Use
  Company Number: US-PFIZER INC-2019143035

PATIENT
  Age: 9 Year
  Sex: Male

DRUGS (2)
  1. GENOTROPIN [Suspect]
     Active Substance: SOMATROPIN
     Indication: SCOLIOSIS
     Dosage: 0.6 MG, DAILY
  2. GENOTROPIN [Suspect]
     Active Substance: SOMATROPIN
     Indication: DYSPLASIA
     Dosage: UNK
     Dates: start: 201303

REACTIONS (4)
  - Product use in unapproved indication [Unknown]
  - Weight increased [Unknown]
  - Growth retardation [Unknown]
  - Decreased appetite [Unknown]
